FAERS Safety Report 6289371-1 (Version None)
Quarter: 2009Q3

REPORT INFORMATION
  Report Type: 
  Country: None (occurrence: None)
  Receive Date: 20090730
  Receipt Date: 20090717
  Transmission Date: 20100115
  Serious: Yes (Other)
  Sender: FDA-Public Use
  Company Number: DK-RANBAXY-2009RR-25844

PATIENT
  Sex: Male
  Weight: 62 kg

DRUGS (1)
  1. SERTRALINE [Suspect]
     Indication: OBSESSIVE-COMPULSIVE DISORDER
     Dosage: UNK
     Dates: start: 20080213, end: 20081008

REACTIONS (5)
  - ACNE [None]
  - FATIGUE [None]
  - FEELING DRUNK [None]
  - HYPERHIDROSIS [None]
  - RESTLESSNESS [None]
